FAERS Safety Report 5642980-2 (Version None)
Quarter: 2008Q1

REPORT INFORMATION
  Report Type: 
  Country: None (occurrence: None)
  Receive Date: 20080228
  Receipt Date: 20080222
  Transmission Date: 20080703
  Serious: Yes (Hospitalization, Other)
  Sender: FDA-Public Use
  Company Number: B0401809A

PATIENT
  Age: 39 Year
  Sex: Male

DRUGS (17)
  1. EPIVIR [Suspect]
     Indication: HIV INFECTION
     Dosage: 150MG TWICE PER DAY
     Route: 048
     Dates: start: 20030716
  2. RETROVIR [Suspect]
     Indication: HIV INFECTION
     Dosage: 400MG PER DAY
     Route: 048
     Dates: start: 20030716, end: 20040418
  3. NEVIRAPINE [Suspect]
     Indication: HIV INFECTION
     Route: 048
     Dates: start: 20030716, end: 20040301
  4. GANCICLOVIR [Suspect]
     Indication: CYTOMEGALOVIRUS INFECTION
     Dosage: 1000MG THREE TIMES PER DAY
     Route: 048
     Dates: start: 20030725, end: 20031215
  5. EMTRICITABINE [Suspect]
     Indication: HIV INFECTION
     Route: 065
     Dates: start: 20060801
  6. TENOFOVIR DISOPROXIL FUMARATE [Suspect]
     Indication: HIV INFECTION
     Route: 065
     Dates: start: 20060801
  7. SANILVUDINE [Suspect]
     Route: 065
     Dates: end: 20060801
  8. ABACAVIR SULFATE [Suspect]
     Indication: ACQUIRED IMMUNODEFICIENCY SYNDROME
     Dosage: 300MG TWICE PER DAY
     Route: 048
     Dates: start: 20040302, end: 20050331
  9. ZERIT [Concomitant]
     Indication: ACQUIRED IMMUNODEFICIENCY SYNDROME
     Route: 048
     Dates: start: 20030930, end: 20040301
  10. ZERIT [Concomitant]
     Route: 048
     Dates: start: 20040419
  11. GANCICLOVIR [Concomitant]
     Dosage: 5MGK TWICE PER DAY
     Route: 042
     Dates: start: 20030708, end: 20030721
  12. GANCICLOVIR [Concomitant]
     Dosage: 5MGK PER DAY
     Route: 042
     Dates: start: 20030722, end: 20030724
  13. DIFLUCAN [Concomitant]
     Indication: OESOPHAGEAL CANDIDIASIS
     Dosage: 100MG PER DAY
     Route: 065
     Dates: start: 20030617, end: 20030621
  14. BAKTAR [Concomitant]
     Route: 048
     Dates: start: 20030527
  15. ALDACTONE [Concomitant]
     Indication: HEPATIC CIRRHOSIS
     Dosage: 50MG PER DAY
     Route: 048
     Dates: start: 20030514
  16. LASIX [Concomitant]
     Indication: HEPATIC CIRRHOSIS
     Dosage: 20MG PER DAY
     Route: 065
     Dates: start: 20030514
  17. SELBEX [Concomitant]
     Indication: HEPATIC CIRRHOSIS
     Dosage: 50MG THREE TIMES PER DAY
     Route: 048
     Dates: start: 20030514

REACTIONS (13)
  - ABDOMINAL PAIN [None]
  - ANAEMIA [None]
  - ASCITES [None]
  - DIARRHOEA [None]
  - GASTROOESOPHAGEAL REFLUX DISEASE [None]
  - HAEMATEMESIS [None]
  - HEPATITIS B [None]
  - LIPODYSTROPHY ACQUIRED [None]
  - PANCYTOPENIA [None]
  - PERITONITIS [None]
  - PYREXIA [None]
  - VARICES OESOPHAGEAL [None]
  - WHITE BLOOD CELL COUNT DECREASED [None]
